FAERS Safety Report 7396393-6 (Version None)
Quarter: 2011Q1

REPORT INFORMATION
  Report Type: 
  Country: None (occurrence: None)
  Receive Date: 20110331
  Receipt Date: 20110331
  Transmission Date: 20110831
  Serious: Yes (Disabling, Other)
  Sender: FDA-Public Use
  Company Number: None

PATIENT
  Sex: Male

DRUGS (2)
  1. THYROID TAB [Suspect]
  2. LEVOTHYROXINE SODIUM [Suspect]
     Indication: HYPOTHYROIDISM
     Dosage: 1 DAILY ORAL
     Route: 048
     Dates: start: 20090909, end: 20091116

REACTIONS (5)
  - WEIGHT DECREASED [None]
  - DYSPHONIA [None]
  - MUSCLE ATROPHY [None]
  - MUSCLE DISORDER [None]
  - PRODUCT SUBSTITUTION ISSUE [None]
